FAERS Safety Report 4385359-6 (Version None)
Quarter: 2004Q2

REPORT INFORMATION
  Report Type: 
  Country: None (occurrence: None)
  Receive Date: 20040622
  Receipt Date: 20040610
  Transmission Date: 20050107
  Serious: Yes (Death)
  Sender: FDA-Public Use
  Company Number: US-JNJFOC-20040603935

PATIENT

DRUGS (1)
  1. ABCIXIMAB (ABCIXIMAB) INJECTION [Suspect]
     Indication: PHLEBOTHROMBOSIS
     Dosage: INTRAVENOUS
     Route: 042

REACTIONS (3)
  - PULMONARY ARTERY THROMBOSIS [None]
  - PULMONARY HYPERTENSION [None]
  - RESPIRATORY FAILURE [None]
